FAERS Safety Report 7638882-2 (Version None)
Quarter: 2011Q3

REPORT INFORMATION
  Report Type: 
  Country: None (occurrence: None)
  Receive Date: 20110727
  Receipt Date: 20110720
  Transmission Date: 20111222
  Serious: Yes (Death)
  Sender: FDA-Public Use
  Company Number: FR-KINGPHARMUSA00001-K201100840

PATIENT
  Age: 77 Year
  Sex: Female

DRUGS (5)
  1. FUROSEMIDE [Concomitant]
     Dosage: UNK
     Dates: end: 20110617
  2. FELODIPINE [Suspect]
     Indication: HYPERTENSION
     Dosage: 2.5 MG, QD
     Route: 048
     Dates: start: 20040101, end: 20110617
  3. ALTACE [Suspect]
     Indication: HYPERTENSION
     Dosage: 2.5 MG, QD
     Route: 048
     Dates: start: 20040101, end: 20110617
  4. GLIMETAL [Concomitant]
     Dosage: UNK
     Dates: end: 20110617
  5. ASPIRIN [Concomitant]
     Dosage: UNK
     Dates: end: 20110617

REACTIONS (1)
  - ACUTE ABDOMEN [None]
